FAERS Safety Report 24720110 (Version 1)
Quarter: 2024Q4

REPORT INFORMATION
  Report Type: Spontaneous
  Country: US (occurrence: US)
  Receive Date: 20241211
  Receipt Date: 20241211
  Transmission Date: 20250115
  Serious: No
  Sender: EMD SERONO INC
  Company Number: US-ELI_LILLY_AND_COMPANY-US202411008028

PATIENT
  Age: 71 Year
  Sex: Female

DRUGS (2)
  1. ERBITUX [Suspect]
     Active Substance: CETUXIMAB
     Indication: Malignant anorectal neoplasm
  2. BRAFTOVI [Concomitant]
     Active Substance: ENCORAFENIB
     Indication: Rectal cancer

REACTIONS (2)
  - Headache [Not Recovered/Not Resolved]
  - Nausea [Not Recovered/Not Resolved]
